FAERS Safety Report 25010788 (Version 1)
Quarter: 2025Q1

REPORT INFORMATION
  Report Type: Spontaneous
  Country: US (occurrence: US)
  Receive Date: 20250225
  Receipt Date: 20250225
  Transmission Date: 20250409
  Serious: No
  Sender: INCYTE
  Company Number: US-EVENT-001663

PATIENT
  Age: 34 Year

DRUGS (1)
  1. OPZELURA [Suspect]
     Active Substance: RUXOLITINIB PHOSPHATE
     Indication: Perioral dermatitis
     Dosage: 1.5 PERCENT, BID APPLY A THIN LAYER TO AFFECTED AREA(S) AROUND MOUTH ONCE TO TWICE DAILY FOR FLAREUP

REACTIONS (1)
  - Off label use [Unknown]
